FAERS Safety Report 10409481 (Version 1)
Quarter: 2014Q3

REPORT INFORMATION
  Report Type: Spontaneous
  Country: TR (occurrence: None)
  Receive Date: 20140822
  Receipt Date: 20140822
  Transmission Date: 20150326
  Serious: Yes (Hospitalization, Other)
  Sender: FDA-Public Use
  Company Number: TR-ZYDUS-004273

PATIENT
  Age: 9 Year
  Sex: Male

DRUGS (3)
  1. CLARITHROMYCIN (CLARITHROMYCIN) [Suspect]
     Active Substance: CLARITHROMYCIN
  2. LAMOTRIGINE (LAMOTRIGINE) [Suspect]
     Active Substance: LAMOTRIGINE
  3. PENICILLIN (PENICILLIN) [Concomitant]

REACTIONS (2)
  - Klebsiella sepsis [None]
  - Toxic epidermal necrolysis [None]
